FAERS Safety Report 6395245-8 (Version None)
Quarter: 2009Q4

REPORT INFORMATION
  Report Type: 
  Country: None (occurrence: None)
  Receive Date: 20091007
  Receipt Date: 20090929
  Transmission Date: 20100525
  Serious: Yes (Disabling)
  Sender: FDA-Public Use
  Company Number: SPV1-2009-01929

PATIENT
  Age: 57 Year
  Sex: Male
  Weight: 67.1 kg

DRUGS (1)
  1. CARBATROL [Suspect]
     Indication: CONVULSION
     Dosage: 200 MG, 2X/DAY:BID, ORAL
     Route: 048
     Dates: start: 20080101

REACTIONS (4)
  - DEPRESSION [None]
  - HYPOAESTHESIA [None]
  - HYPOAESTHESIA FACIAL [None]
  - IMPAIRED WORK ABILITY [None]
